FAERS Safety Report 19166857 (Version 1)
Quarter: 2021Q2

REPORT INFORMATION
  Report Type: Spontaneous
  Country: US (occurrence: US)
  Receive Date: 20210422
  Receipt Date: 20210422
  Transmission Date: 20210717
  Serious: No
  Sender: FDA-Public Use
  Company Number: US-DRREDDYS-USA/USA/21/0134376

PATIENT
  Sex: Female

DRUGS (1)
  1. TIZANIDINE HYDROCHLORIDE. [Suspect]
     Active Substance: TIZANIDINE HYDROCHLORIDE
     Indication: NECK PAIN
     Dosage: TOOK 2MG ONLY ONCE
     Route: 048

REACTIONS (3)
  - Fatigue [Unknown]
  - Incorrect dose administered [Unknown]
  - Dry mouth [Unknown]
